FAERS Safety Report 10553559 (Version 1)
Quarter: 2014Q4

REPORT INFORMATION
  Report Type: Report from Study
  Country: BR (occurrence: BR)
  Receive Date: 20141030
  Receipt Date: 20141030
  Transmission Date: 20150529
  Serious: Yes (Hospitalization, Other)
  Sender: FDA-Public Use
  Company Number: BR-ROCHE-1481386

PATIENT
  Age: 54 Year
  Sex: Female

DRUGS (5)
  1. MABTHERA [Suspect]
     Active Substance: RITUXIMAB
     Indication: RHEUMATOID ARTHRITIS
     Route: 042
     Dates: start: 20140304, end: 20140409
  2. PREDNISONE. [Concomitant]
     Active Substance: PREDNISONE
  3. IBUPROFEN. [Concomitant]
     Active Substance: IBUPROFEN
  4. FOLIC ACID. [Concomitant]
     Active Substance: FOLIC ACID
  5. PRESSAT [Concomitant]
     Active Substance: AMLODIPINE BESYLATE

REACTIONS (2)
  - Infarction [Unknown]
  - Throat tightness [Recovered/Resolved]

NARRATIVE: CASE EVENT DATE: 201406
